FAERS Safety Report 7628240-9 (Version None)
Quarter: 2011Q3

REPORT INFORMATION
  Report Type: 
  Country: None (occurrence: None)
  Receive Date: 20110720
  Receipt Date: 20110720
  Transmission Date: 20111222
  Serious: Yes (Other)
  Sender: FDA-Public Use
  Company Number: None

PATIENT

DRUGS (1)
  1. ZOLPIDEM [Suspect]
     Dosage: 12.5 MG QHS
     Dates: start: 20101101

REACTIONS (1)
  - PRODUCT SUBSTITUTION ISSUE [None]
